FAERS Safety Report 9412548 (Version 1)
Quarter: 2013Q3

REPORT INFORMATION
  Report Type: Spontaneous
  Country: US (occurrence: US)
  Receive Date: 20130722
  Receipt Date: 20130722
  Transmission Date: 20140515
  Serious: Yes (Other)
  Sender: FDA-Public Use
  Company Number: US-BAYER-2013-086169

PATIENT
  Sex: Female

DRUGS (9)
  1. ALEVE CAPLET [Suspect]
     Indication: ARTHRITIS
     Dosage: 220 MG, BID
     Dates: start: 2004
  2. ALEVE CAPLET [Suspect]
     Indication: ARTHRALGIA
     Dosage: 220 MG, TID
  3. ALEVE CAPLET [Suspect]
     Indication: SPINAL PAIN
     Dosage: 220 MG, BID
  4. BAYER GENUINE ASPIRIN ORIGINAL STRENGTH [Suspect]
  5. MOTRIN [Suspect]
     Indication: PAIN MANAGEMENT
  6. NAPROXEN [Suspect]
     Indication: PAIN MANAGEMENT
     Dosage: 500 MG, BID
  7. VICODIN [Concomitant]
     Indication: PAIN MANAGEMENT
     Dosage: 5/325MG, QID
     Dates: start: 2006
  8. TYLENOL [PARACETAMOL] [Concomitant]
     Indication: PAIN MANAGEMENT
     Dosage: 3000 MG, QD
  9. DARVOCET [Concomitant]
     Indication: PAIN MANAGEMENT

REACTIONS (5)
  - Gastrointestinal ulcer [Unknown]
  - Abdominal pain upper [Unknown]
  - Epigastric discomfort [Unknown]
  - Drug intolerance [Unknown]
  - Incorrect drug administration duration [None]
